FAERS Safety Report 9393087 (Version 2)
Quarter: 2013Q3

REPORT INFORMATION
  Report Type: Spontaneous
  Country: DE (occurrence: DE)
  Receive Date: 20130710
  Receipt Date: 20130828
  Transmission Date: 20140515
  Serious: Yes (Hospitalization, Other)
  Sender: FDA-Public Use
  Company Number: DE-PFIZER INC-2013197552

PATIENT
  Age: 50 Year
  Sex: Female
  Weight: 51 kg

DRUGS (4)
  1. REVATIO [Suspect]
     Indication: PULMONARY ARTERIAL HYPERTENSION
     Dosage: 20 MG, 3X/DAY
     Route: 048
     Dates: start: 20130529
  2. REVATIO [Suspect]
     Dosage: 20 MG, 2X/DAY
  3. TACROLIMUS [Concomitant]
     Dosage: UNK
  4. MYCOPHENOLATE [Concomitant]
     Dosage: UNK

REACTIONS (2)
  - Hepatic encephalopathy [Unknown]
  - Hepatic cirrhosis [Recovered/Resolved]
